FAERS Safety Report 23266305 (Version 1)
Quarter: 2023Q4

REPORT INFORMATION
  Report Type: Spontaneous
  Country: EG (occurrence: EG)
  Receive Date: 20231206
  Receipt Date: 20231206
  Transmission Date: 20240110
  Serious: Yes (Other)
  Sender: FDA-Public Use
  Company Number: EG-002147023-NVSC2023EG255986

PATIENT

DRUGS (3)
  1. CYCLOSPORINE [Suspect]
     Active Substance: CYCLOSPORINE
     Indication: Prophylaxis against graft versus host disease
     Dosage: 3 MG/KG, Q12H (FROM DAY 5, DIVIDED ON 2 EQUAL DOSES, DILUTED IN NORMAL SALINE AND INFUSED OVER 1 H)
     Route: 042
  2. CYCLOPHOSPHAMIDE [Concomitant]
     Active Substance: CYCLOPHOSPHAMIDE
     Indication: Prophylaxis against graft versus host disease
     Dosage: UNK (HIGH-DOSE, ON DAYS 3 AND 4, OVER 1-2 H)
     Route: 042
  3. MESNA [Concomitant]
     Active Substance: MESNA
     Indication: Prophylaxis
     Dosage: UNK (4 DIVIDED DOSES)
     Route: 065

REACTIONS (1)
  - Toxicity to various agents [Unknown]
